FAERS Safety Report 9491456 (Version 2)
Quarter: 2014Q1

REPORT INFORMATION
  Report Type: Spontaneous
  Country: US (occurrence: US)
  Receive Date: 20120619
  Receipt Date: 20140316
  Transmission Date: 20141002
  Serious: No
  Sender: FDA-Public Use
  Company Number: US-LUNDBECK-DKLU1077086

PATIENT
  Age: 44 Year
  Sex: Female

DRUGS (7)
  1. ONFI [Suspect]
     Indication: PRODUCT USED FOR UNKNOWN INDICATION
     Dates: start: 20120206, end: 20120223
  2. LEVETIRACETAM-XR [Concomitant]
     Indication: PRODUCT USED FOR UNKNOWN INDICATION
  3. LEVETIRACETAM-XR [Concomitant]
  4. LEVETIRACETAM-XR [Concomitant]
  5. OXCARBAZEPINE [Concomitant]
     Indication: PRODUCT USED FOR UNKNOWN INDICATION
  6. MIRTAZAPINE [Concomitant]
     Indication: PRODUCT USED FOR UNKNOWN INDICATION
  7. ALENDRONATE [Concomitant]
     Indication: PRODUCT USED FOR UNKNOWN INDICATION

REACTIONS (2)
  - Dyspnoea [Recovered/Resolved]
  - Heart rate increased [Unknown]
